FAERS Safety Report 5521605-0 (Version None)
Quarter: 2007Q4

REPORT INFORMATION
  Report Type: 
  Country: None (occurrence: None)
  Receive Date: 20071115
  Receipt Date: 20071101
  Transmission Date: 20080405
  Serious: Yes (Hospitalization)
  Sender: FDA-Public Use
  Company Number: 230212K07BRA

PATIENT
  Age: 71 Year
  Sex: Male

DRUGS (1)
  1. REBIF [Suspect]
     Dosage: 44 MCG, 3 IN 1 WEEKS
     Dates: start: 20040112

REACTIONS (4)
  - BURN INFECTION [None]
  - NEUROGENIC BLADDER [None]
  - SENSORY LOSS [None]
  - URINARY TRACT INFECTION [None]
